FAERS Safety Report 4683203-0 (Version None)
Quarter: 2005Q2

REPORT INFORMATION
  Report Type: 
  Country: None (occurrence: None)
  Receive Date: 20050602
  Receipt Date: 20050310
  Transmission Date: 20051028
  Serious: No
  Sender: FDA-Public Use
  Company Number: USA050392947

PATIENT
  Sex: Female

DRUGS (3)
  1. CYMBALTA [Suspect]
     Indication: DEPRESSION
  2. PROZAC [Suspect]
  3. XANAX (ALPRAZOLAM DUM) [Concomitant]

REACTIONS (5)
  - ABDOMINAL PAIN UPPER [None]
  - DIARRHOEA [None]
  - EATING DISORDER [None]
  - FEELING ABNORMAL [None]
  - MALAISE [None]
